FAERS Safety Report 10598099 (Version 1)
Quarter: 2014Q4

REPORT INFORMATION
  Report Type: Spontaneous
  Country: US (occurrence: None)
  Receive Date: 20141120
  Receipt Date: 20141120
  Transmission Date: 20150529
  Serious: Yes (Other)
  Sender: FDA-Public Use
  Company Number: None

PATIENT
  Age: 9 Year
  Sex: Male

DRUGS (1)
  1. MIRALAX [Suspect]
     Active Substance: POLYETHYLENE GLYCOL 3350
     Indication: ENCOPRESIS
     Dosage: 1 17 G DOSE DISOLVED IN WATER
     Route: 048
     Dates: start: 20140711, end: 20140805

REACTIONS (1)
  - Anger [None]

NARRATIVE: CASE EVENT DATE: 20140805
